FAERS Safety Report 9313397 (Version 2)
Quarter: 2013Q2

REPORT INFORMATION
  Report Type: Spontaneous
  Country: US (occurrence: US)
  Receive Date: 20130528
  Receipt Date: 20130603
  Transmission Date: 20140414
  Serious: Yes (Death, Hospitalization, Other)
  Sender: FDA-Public Use
  Company Number: PHHY2013US053021

PATIENT
  Age: 37 Year
  Sex: Male

DRUGS (8)
  1. METFORMIN [Suspect]
     Dosage: 1000 MG, BID
  2. LISINOPRIL [Concomitant]
  3. METAMUCIL [Concomitant]
  4. COLACE [Concomitant]
  5. VALPROIC ACID [Concomitant]
  6. PALIPERIDONE [Concomitant]
  7. SIMVASTATIN [Concomitant]
  8. ASPIRIN [Concomitant]

REACTIONS (13)
  - Death [Fatal]
  - Toxicity to various agents [Unknown]
  - Lactic acidosis [Unknown]
  - Dizziness [Unknown]
  - Vomiting [Unknown]
  - Agitation [Unknown]
  - Unresponsive to stimuli [Unknown]
  - Renal failure [Unknown]
  - Constipation [Unknown]
  - Abdominal pain [Unknown]
  - Infrequent bowel movements [Unknown]
  - Dehydration [Unknown]
  - Blood pressure decreased [Unknown]
